FAERS Safety Report 5554901-1 (Version None)
Quarter: 2007Q4

REPORT INFORMATION
  Report Type: 
  Country: None (occurrence: None)
  Receive Date: 20071213
  Receipt Date: 20071203
  Transmission Date: 20080405
  Serious: Yes (Hospitalization)
  Sender: FDA-Public Use
  Company Number: ES-GENENTECH-252599

PATIENT
  Sex: Male
  Weight: 64 kg

DRUGS (7)
  1. RITUXIMAB [Suspect]
     Indication: CHRONIC LYMPHOCYTIC LEUKAEMIA
     Dosage: 100 MG/M2, Q28D
     Route: 042
     Dates: start: 20070301
  2. FLUDARABINE PHOSPHATE [Suspect]
     Indication: CHRONIC LYMPHOCYTIC LEUKAEMIA
     Dosage: 25 MG/M2, Q28D
     Route: 042
     Dates: start: 20070301, end: 20070626
  3. FLUDARABINE PHOSPHATE [Suspect]
     Dosage: 12.5 MG/M2, Q28D
     Route: 042
     Dates: start: 20070626
  4. CYCLOPHOSPHAMIDE [Suspect]
     Indication: CHRONIC LYMPHOCYTIC LEUKAEMIA
     Dosage: 200 MG/M2, Q28D
     Route: 042
     Dates: start: 20070301, end: 20070626
  5. CYCLOPHOSPHAMIDE [Suspect]
     Dosage: 100 MG/M2, Q28D
     Route: 042
     Dates: start: 20070626
  6. MITOXANTRONE [Suspect]
     Indication: CHRONIC LYMPHOCYTIC LEUKAEMIA
     Dosage: 6 MG/M2, Q28D
     Route: 042
     Dates: start: 20070301, end: 20070626
  7. MITOXANTRONE [Suspect]
     Dosage: 3 MG/M2, Q28D
     Route: 042
     Dates: start: 20070626

REACTIONS (1)
  - FEBRILE NEUTROPENIA [None]
